FAERS Safety Report 6432306-9 (Version None)
Quarter: 2009Q4

REPORT INFORMATION
  Report Type: 
  Country: None (occurrence: None)
  Receive Date: 20091105
  Receipt Date: 20091026
  Transmission Date: 20100525
  Serious: Yes (Other)
  Sender: FDA-Public Use
  Company Number: 2009SP032547

PATIENT

DRUGS (1)
  1. NUVARING [Suspect]
     Indication: DRUG EXPOSURE DURING PREGNANCY
     Dosage: TRPL
     Route: 064

REACTIONS (2)
  - CATARACT CONGENITAL [None]
  - MATERNAL DRUGS AFFECTING FOETUS [None]
